FAERS Safety Report 10267762 (Version 1)
Quarter: 2014Q2

REPORT INFORMATION
  Report Type: Spontaneous
  Country: US (occurrence: US)
  Receive Date: 20140630
  Receipt Date: 20140630
  Transmission Date: 20141212
  Serious: No
  Sender: FDA-Public Use
  Company Number: US-GLAXOSMITHKLINE-A1056581A

PATIENT
  Sex: Male

DRUGS (4)
  1. RANITIDINE [Suspect]
     Indication: GASTROOESOPHAGEAL REFLUX DISEASE
     Route: 048
  2. ZOLOFT [Concomitant]
  3. MYLICON [Concomitant]
  4. ANTIBIOTICS [Concomitant]

REACTIONS (1)
  - Cough [Recovered/Resolved]
